FAERS Safety Report 6102681-3 (Version None)
Quarter: 2009Q1

REPORT INFORMATION
  Report Type: 
  Country: None (occurrence: None)
  Receive Date: 20090304
  Receipt Date: 20081230
  Transmission Date: 20090719
  Serious: No
  Sender: FDA-Public Use
  Company Number: A0761892A

PATIENT
  Age: 60 Year
  Sex: Female

DRUGS (3)
  1. REQUIP XL [Suspect]
     Indication: RESTLESS LEGS SYNDROME
     Dosage: 2MG PER DAY
     Route: 048
     Dates: start: 20081218
  2. KLONOPIN [Concomitant]
  3. THYROID TAB [Concomitant]

REACTIONS (5)
  - ARTHRALGIA [None]
  - MUSCULAR WEAKNESS [None]
  - MUSCULOSKELETAL PAIN [None]
  - NECK PAIN [None]
  - PAIN IN EXTREMITY [None]
